FAERS Safety Report 8176098 (Version 2)
Quarter: 2013Q3

REPORT INFORMATION
  Report Type: Report from Study
  Country: US (occurrence: US)
  Receive Date: 20111011
  Receipt Date: 20130807
  Transmission Date: 20140515
  Serious: Yes (Hospitalization)
  Sender: FDA-Public Use
  Company Number: US-ACTELION-A-US2011-54930

PATIENT
  Age: 79 Year
  Sex: Female

DRUGS (4)
  1. TRACLEER [Suspect]
     Indication: PULMONARY ARTERIAL HYPERTENSION
     Dosage: UNK MG, UNK
     Route: 048
     Dates: start: 20100528
  2. DIGOXIN [Suspect]
     Dosage: UNK
     Dates: end: 201108
  3. POTASSIUM [Suspect]
     Dosage: UNK
     Dates: end: 201108
  4. COUMADIN [Concomitant]

REACTIONS (4)
  - Blood potassium increased [Not Recovered/Not Resolved]
  - Toxicity to various agents [Unknown]
  - Dialysis [Not Recovered/Not Resolved]
  - Muscle spasms [Unknown]
